FAERS Safety Report 25796892 (Version 2)
Quarter: 2025Q4

REPORT INFORMATION
  Report Type: Spontaneous
  Country: JP (occurrence: JP)
  Receive Date: 20250912
  Receipt Date: 20251015
  Transmission Date: 20260119
  Serious: Yes (Other)
  Sender: GILEAD
  Company Number: JP-GILEAD-2025-0727895

PATIENT
  Sex: Female

DRUGS (1)
  1. TRODELVY [Suspect]
     Active Substance: SACITUZUMAB GOVITECAN-HZIY
     Indication: Triple negative breast cancer
     Dosage: 7.5 MG/KG
     Route: 041
     Dates: start: 20250722, end: 20250819

REACTIONS (2)
  - Drug eruption [Not Recovered/Not Resolved]
  - Fixed eruption [Not Recovered/Not Resolved]

NARRATIVE: CASE EVENT DATE: 20250902
